FAERS Safety Report 5836736-5 (Version None)
Quarter: 2008Q3

REPORT INFORMATION
  Report Type: 
  Country: None (occurrence: None)
  Receive Date: 20080807
  Receipt Date: 20080731
  Transmission Date: 20090109
  Serious: Yes (Hospitalization)
  Sender: FDA-Public Use
  Company Number: US-ASTRAZENECA-2008UW15126

PATIENT
  Age: 79 Year
  Sex: Female

DRUGS (5)
  1. CRESTOR [Suspect]
     Dosage: 5 MG
     Route: 048
     Dates: start: 20080705
  2. BYSTOLIC [Concomitant]
     Dates: end: 20080710
  3. MYCARDIS [Concomitant]
     Dates: start: 20080710
  4. COUMADIN [Concomitant]
  5. LIPITOR [Concomitant]
     Dates: end: 20080701

REACTIONS (1)
  - ATRIAL FIBRILLATION [None]
